FAERS Safety Report 20643859 (Version 1)
Quarter: 2022Q1

REPORT INFORMATION
  Report Type: Spontaneous
  Country: US (occurrence: US)
  Receive Date: 20220328
  Receipt Date: 20220328
  Transmission Date: 20220423
  Serious: No
  Sender: FDA-Public Use
  Company Number: US-JUBILANT CADISTA PHARMACEUTICALS-2021JUB00107

PATIENT
  Age: 52 Year
  Sex: Female
  Weight: 106.58 kg

DRUGS (4)
  1. IRBESARTAN [Suspect]
     Active Substance: IRBESARTAN
     Indication: Hypertension
     Dosage: 75 MG, 1X/DAY
     Dates: start: 202004, end: 202103
  2. METFORMIN [Concomitant]
     Active Substance: METFORMIN HYDROCHLORIDE
  3. DILTIAZEM [Concomitant]
     Active Substance: DILTIAZEM
  4. HYDROCHLOROTHIAZIDE [Concomitant]
     Active Substance: HYDROCHLOROTHIAZIDE

REACTIONS (6)
  - Sinus disorder [Not Recovered/Not Resolved]
  - Rhinorrhoea [Recovering/Resolving]
  - Nasal congestion [Not Recovered/Not Resolved]
  - Aphonia [Not Recovered/Not Resolved]
  - Dysphonia [Not Recovered/Not Resolved]
  - Gastrooesophageal reflux disease [Not Recovered/Not Resolved]

NARRATIVE: CASE EVENT DATE: 20200401
